FAERS Safety Report 5796592-0 (Version None)
Quarter: 2008Q2

REPORT INFORMATION
  Report Type: 
  Country: None (occurrence: None)
  Receive Date: 20080630
  Receipt Date: 20080630
  Transmission Date: 20081010
  Serious: Yes (Hospitalization)
  Sender: FDA-Public Use
  Company Number: None

PATIENT
  Age: 48 Year
  Sex: Male
  Weight: 109.59 kg

DRUGS (2)
  1. METHADON HCL TAB [Suspect]
     Dosage: 5 MG BID PO
     Route: 048
     Dates: start: 20080501, end: 20080507
  2. ETODOLAC [Suspect]
     Dosage: 400 MG BID PO
     Route: 048
     Dates: start: 20080501, end: 20080507

REACTIONS (5)
  - DYSPNOEA [None]
  - FLUSHING [None]
  - NAUSEA [None]
  - STOMACH DISCOMFORT [None]
  - VOMITING [None]
